FAERS Safety Report 4920226-8 (Version None)
Quarter: 2006Q1

REPORT INFORMATION
  Report Type: 
  Country: None (occurrence: None)
  Receive Date: 20060223
  Receipt Date: 20060208
  Transmission Date: 20060701
  Serious: Yes (Other)
  Sender: FDA-Public Use
  Company Number: CHWYE376909FEB06

PATIENT
  Age: 42 Year
  Sex: Female

DRUGS (2)
  1. ENBREL [Suspect]
     Indication: RHEUMATOID ARTHRITIS
     Route: 058
     Dates: start: 20050614, end: 20050914
  2. ANTIBIOTICS [Concomitant]
     Indication: TUBERCULOSIS
     Dosage: UNKNOWN
     Dates: start: 20050401, end: 20060101

REACTIONS (3)
  - BRONCHITIS [None]
  - FLATULENCE [None]
  - HAEMOPTYSIS [None]
